FAERS Safety Report 8364205-X (Version None)
Quarter: 2012Q2

REPORT INFORMATION
  Report Type: 
  Country: None (occurrence: None)
  Receive Date: 20120516
  Receipt Date: 20120507
  Transmission Date: 20120825
  Serious: Yes (Hospitalization)
  Sender: FDA-Public Use
  Company Number: US-ASTRAZENECA-2011SE28878

PATIENT
  Age: 44 Year
  Sex: Female
  Weight: 65.8 kg

DRUGS (7)
  1. SEROQUEL XR [Suspect]
     Indication: DEPRESSION
     Route: 048
  2. PROZAC [Concomitant]
     Indication: DEPRESSION
  3. TRAZAVAIR [Concomitant]
     Indication: HIV INFECTION
     Dosage: 300 MG, 150 MG, 300 MG
  4. SEROQUEL XR [Suspect]
     Indication: BIPOLAR DISORDER
     Route: 048
  5. SEROQUEL XR [Suspect]
     Indication: ANXIETY
     Route: 048
  6. LISINOPRIL [Concomitant]
     Indication: HYPERTENSION
  7. REQUIP [Concomitant]
     Indication: RESTLESS LEGS SYNDROME

REACTIONS (3)
  - DRUG DOSE OMISSION [None]
  - MENTAL DISORDER [None]
  - DRUG INEFFECTIVE [None]
